FAERS Safety Report 6181714-2 (Version None)
Quarter: 2009Q2

REPORT INFORMATION
  Report Type: 
  Country: None (occurrence: None)
  Receive Date: 20090506
  Receipt Date: 20090504
  Transmission Date: 20091009
  Serious: Yes (Hospitalization)
  Sender: FDA-Public Use
  Company Number: US-EISAI INC.-E7867-00040-CLI-US

PATIENT
  Sex: Female
  Weight: 46 kg

DRUGS (21)
  1. GLIADEL [Suspect]
     Indication: BRAIN CANCER METASTATIC
     Route: 018
     Dates: start: 20090106
  2. LEVOXYL [Concomitant]
     Dates: start: 20080303
  3. ALENDRONATE SODIUM [Concomitant]
     Dates: start: 20080303
  4. CALCIUM CITRATE [Concomitant]
     Dates: start: 20080707
  5. DOCUSATE/SENNOSIDES [Concomitant]
     Dates: start: 20080303
  6. FERROUS GLUCONATE [Concomitant]
     Dates: start: 20080303
  7. ZOLPIDEM [Concomitant]
     Dates: start: 20090104
  8. ALUMINUM HYDROXIDE GEL [Concomitant]
  9. BISACODYL [Concomitant]
     Dates: start: 20090108
  10. ERGOCALCIFEROL [Concomitant]
     Dates: start: 20090106
  11. FAMOTIDINE [Concomitant]
     Dates: start: 20090106
  12. GUAIFENESIN [Concomitant]
     Dates: start: 20090109
  13. INSULIN [Concomitant]
     Dates: start: 20090107
  14. LACTULOSE [Concomitant]
     Dates: start: 20090112
  15. LEVOFLOXACIN [Concomitant]
     Dates: start: 20090104
  16. MULTI-VITAMINS [Concomitant]
  17. VENLAFAXINE HCL [Concomitant]
     Dates: start: 20081229
  18. VITAMIN D [Concomitant]
     Dates: start: 20080303
  19. IPRATROPIUM BROMIDE [Concomitant]
  20. LOVASTATIN [Concomitant]
  21. MEGACE [Concomitant]

REACTIONS (4)
  - ASTHENIA [None]
  - CONVULSION [None]
  - DEHYDRATION [None]
  - NON-SMALL CELL LUNG CANCER [None]
